FAERS Safety Report 9466672 (Version 1)
Quarter: 2013Q3

REPORT INFORMATION
  Report Type: Spontaneous
  Country: US (occurrence: None)
  Receive Date: 20130816
  Receipt Date: 20130816
  Transmission Date: 20140515
  Serious: Yes (Other)
  Sender: FDA-Public Use
  Company Number: None

PATIENT
  Age: 71 Year
  Sex: Male
  Weight: 49.44 kg

DRUGS (2)
  1. METFORMIN HYDROCHLORIDE [Suspect]
     Indication: TYPE 2 DIABETES MELLITUS
     Route: 048
     Dates: start: 20130708
  2. CIPROFLOXACIN, 500 MG, WEST-WARD [Suspect]
     Indication: URINARY TRACT INFECTION
     Route: 048
     Dates: start: 20130708, end: 20130723

REACTIONS (9)
  - Parosmia [None]
  - Dysgeusia [None]
  - Nausea [None]
  - Decreased appetite [None]
  - Hypoglycaemia [None]
  - Drug clearance decreased [None]
  - Neuropathy peripheral [None]
  - Renal disorder [None]
  - Quality of life decreased [None]
